FAERS Safety Report 5030366-3 (Version None)
Quarter: 2006Q2

REPORT INFORMATION
  Report Type: 
  Country: None (occurrence: None)
  Receive Date: 20060614
  Receipt Date: 20060601
  Transmission Date: 20061013
  Serious: Yes (Hospitalization)
  Sender: FDA-Public Use
  Company Number: 225039

PATIENT
  Age: 55 Year
  Sex: Female
  Weight: 47.5 kg

DRUGS (5)
  1. MABTHERA(RITUXIMAB) CONC FOR SOLUTION FOR INFUSION [Suspect]
     Indication: DIFFUSE LARGE B-CELL LYMPHOMA
     Dosage: 600 MG,
     Dates: start: 20051220, end: 20051220
  2. CYCLOPHOSPHAMIDE [Suspect]
     Indication: NEOPLASM
     Dosage: 1100 MG,
     Dates: start: 20051220, end: 20051220
  3. DOXORUBICIN HCL [Suspect]
     Indication: NEOPLASM
     Dosage: 75 MG, INTRAVENOUS
     Route: 042
     Dates: start: 20051220, end: 20051220
  4. VINCRISTINE [Suspect]
     Indication: NEOPLASM
     Dosage: 2 MG, INTRAVENOUS
     Route: 042
     Dates: start: 20051220, end: 20051220
  5. PREDNISONE TAB [Suspect]
     Indication: NEOPLASM
     Dosage: 100 MG, ORAL
     Route: 048
     Dates: start: 20051221, end: 20051229

REACTIONS (2)
  - ILEUS PARALYTIC [None]
  - SUBILEUS [None]
